FAERS Safety Report 7897793-8 (Version None)
Quarter: 2011Q4

REPORT INFORMATION
  Report Type: 
  Country: None (occurrence: None)
  Receive Date: 20111107
  Receipt Date: 20110912
  Transmission Date: 20120403
  Serious: Yes (Other)
  Sender: FDA-Public Use
  Company Number: US-ROCHE-1009203

PATIENT
  Sex: Female

DRUGS (3)
  1. RITUXAN [Suspect]
     Indication: NON-HODGKIN'S LYMPHOMA STAGE IV
     Route: 042
     Dates: start: 20110401
  2. RITUXAN [Suspect]
     Route: 042
     Dates: start: 20110907
  3. BENDAMUSTINE [Concomitant]

REACTIONS (4)
  - SEIZURE LIKE PHENOMENA [None]
  - CONVULSION [None]
  - CHILLS [None]
  - ANAPHYLACTIC REACTION [None]
